FAERS Safety Report 8406907-2 (Version None)
Quarter: 2012Q2

REPORT INFORMATION
  Report Type: 
  Country: None (occurrence: None)
  Receive Date: 20120604
  Receipt Date: 20120528
  Transmission Date: 20120825
  Serious: Yes (Hospitalization)
  Sender: FDA-Public Use
  Company Number: GB-UCBSA-057098

PATIENT
  Sex: Male

DRUGS (5)
  1. MADOPAR [Concomitant]
     Indication: PARKINSON'S DISEASE
     Route: 048
  2. TASMAR [Concomitant]
     Indication: PARKINSON'S DISEASE
  3. NEUPRO [Suspect]
     Indication: PARKINSON'S DISEASE
     Dosage: USUALLY 2 HOURLY REGIME
     Route: 062
  4. SINEMET [Concomitant]
     Indication: PARKINSON'S DISEASE
  5. AZILECT [Concomitant]
     Indication: PARKINSON'S DISEASE

REACTIONS (4)
  - CHOKING [None]
  - DYSPHAGIA [None]
  - TREATMENT NONCOMPLIANCE [None]
  - MUSCLE RIGIDITY [None]
